FAERS Safety Report 13477225 (Version 1)
Quarter: 2017Q2

REPORT INFORMATION
  Report Type: Spontaneous
  Country: US (occurrence: US)
  Receive Date: 20170425
  Receipt Date: 20170425
  Transmission Date: 20170830
  Serious: No
  Sender: FDA-Public Use
  Company Number: US-GLAXOSMITHKLINE-US2017058863

PATIENT
  Age: 63 Year
  Sex: Female

DRUGS (1)
  1. BREO ELLIPTA [Suspect]
     Active Substance: FLUTICASONE FUROATE\VILANTEROL TRIFENATATE
     Indication: BRONCHITIS
     Dosage: 1 PUFF(S), QD
     Route: 055
     Dates: start: 20170420

REACTIONS (6)
  - Productive cough [Unknown]
  - Product use in unapproved indication [Unknown]
  - Cough [Not Recovered/Not Resolved]
  - Device use error [Unknown]
  - Pyrexia [Not Recovered/Not Resolved]
  - Wrong technique in product usage process [Unknown]

NARRATIVE: CASE EVENT DATE: 20170420
